FAERS Safety Report 8364647-2 (Version None)
Quarter: 2012Q2

REPORT INFORMATION
  Report Type: 
  Country: None (occurrence: None)
  Receive Date: 20120516
  Receipt Date: 20120507
  Transmission Date: 20120825
  Serious: Yes (Death, Hospitalization, Other)
  Sender: FDA-Public Use
  Company Number: AR-AMGEN-ARGSP2012026920

PATIENT
  Age: 58 Year
  Sex: Female

DRUGS (2)
  1. ARCOXIA [Concomitant]
     Dosage: UNK
  2. ENBREL [Suspect]
     Indication: RHEUMATOID ARTHRITIS
     Dosage: 25 MG, WEEKLY
     Route: 058
     Dates: start: 20090203

REACTIONS (3)
  - IMMUNE SYSTEM DISORDER [None]
  - SEPSIS [None]
  - MENINGITIS [None]
